FAERS Safety Report 25208551 (Version 4)
Quarter: 2025Q3

REPORT INFORMATION
  Report Type: Report from Study
  Country: US (occurrence: US)
  Receive Date: 20250417
  Receipt Date: 20250809
  Transmission Date: 20251021
  Serious: Yes (Other)
  Sender: ALEXION PHARMACEUTICALS
  Company Number: US-AstraZeneca-CH-00846958A

PATIENT
  Sex: Male

DRUGS (2)
  1. BUDESONIDE\FORMOTEROL\GLYCOPYRRONIUM [Suspect]
     Active Substance: BUDESONIDE\FORMOTEROL\GLYCOPYRRONIUM
     Route: 065
  2. OZEMPIC [Suspect]
     Active Substance: SEMAGLUTIDE

REACTIONS (6)
  - Abdominal hernia [Unknown]
  - Product prescribing issue [Unknown]
  - Illness [Unknown]
  - Weight decreased [Unknown]
  - Incorrect dose administered [Unknown]
  - Activities of daily living decreased [Unknown]
